FAERS Safety Report 4358555-1 (Version None)
Quarter: 2004Q2

REPORT INFORMATION
  Report Type: 
  Country: None (occurrence: None)
  Receive Date: 20040512
  Receipt Date: 20040430
  Transmission Date: 20050107
  Serious: No
  Sender: FDA-Public Use
  Company Number: 04P-008-0254946-00

PATIENT
  Age: 68 Year
  Sex: Female

DRUGS (5)
  1. VALPROATE SODIUM [Suspect]
     Indication: EPILEPSY
     Dosage: 1500 MG, 1 IN 1 D
     Dates: end: 20040317
  2. VALPROATE SODIUM [Suspect]
     Indication: POST PROCEDURAL COMPLICATION
     Dosage: 1500 MG, 1 IN 1 D
     Dates: end: 20040317
  3. SERTRALINE HYDROCHLORIDE [Concomitant]
  4. OLANZAPINE [Concomitant]
  5. PHENYTOIN [Concomitant]

REACTIONS (4)
  - CONVULSION [None]
  - DRUG INEFFECTIVE [None]
  - DRUG LEVEL INCREASED [None]
  - GAIT DISTURBANCE [None]
